FAERS Safety Report 7300777-1 (Version None)
Quarter: 2011Q1

REPORT INFORMATION
  Report Type: 
  Country: None (occurrence: None)
  Receive Date: 20110103
  Receipt Date: 20100824
  Transmission Date: 20110831
  Serious: Yes (Other)
  Sender: FDA-Public Use
  Company Number: US-005113

PATIENT
  Sex: Female

DRUGS (3)
  1. PROHANCE [Suspect]
     Indication: NUCLEAR MAGNETIC RESONANCE IMAGING
     Dosage: 20ML ONCE, 40 ML ONCE
     Dates: start: 20070511, end: 20070511
  2. PROHANCE [Suspect]
     Indication: NUCLEAR MAGNETIC RESONANCE IMAGING
     Dosage: 20ML ONCE, 40 ML ONCE
     Dates: start: 20071109, end: 20071109
  3. MULTIHANCE [Suspect]
     Indication: NUCLEAR MAGNETIC RESONANCE IMAGING
     Dosage: 20 ML ONCE
     Dates: start: 20080304, end: 20080304

REACTIONS (1)
  - NEPHROGENIC SYSTEMIC FIBROSIS [None]
